FAERS Safety Report 8167617-2 (Version None)
Quarter: 2012Q1

REPORT INFORMATION
  Report Type: 
  Country: None (occurrence: None)
  Receive Date: 20120227
  Receipt Date: 20120221
  Transmission Date: 20120608
  Serious: Yes (Disabling, Other)
  Sender: FDA-Public Use
  Company Number: US-PFIZER INC-2011307683

PATIENT
  Sex: Female

DRUGS (4)
  1. CHANTIX [Suspect]
     Indication: SMOKING CESSATION THERAPY
     Dosage: 0.5 MG AND 1 MG
     Dates: start: 20070815, end: 20071201
  2. XANAX [Concomitant]
     Indication: ANXIETY
     Dosage: UNK
     Dates: start: 19970101, end: 20090101
  3. WELLBUTRIN [Concomitant]
     Indication: DEPRESSION
     Dosage: UNK
     Dates: start: 19970101, end: 20090101
  4. WELLBUTRIN [Concomitant]
     Indication: SMOKING CESSATION THERAPY

REACTIONS (13)
  - DEPRESSION [None]
  - MENTAL DISORDER [None]
  - POST-TRAUMATIC STRESS DISORDER [None]
  - ANXIETY [None]
  - PARANOIA [None]
  - ANGER [None]
  - PSYCHOTIC DISORDER [None]
  - AMNESIA [None]
  - INSOMNIA [None]
  - PERSONALITY DISORDER [None]
  - PANIC DISORDER WITH AGORAPHOBIA [None]
  - SUICIDAL BEHAVIOUR [None]
  - AGGRESSION [None]
